FAERS Safety Report 5720193-3 (Version None)
Quarter: 2008Q2

REPORT INFORMATION
  Report Type: 
  Country: None (occurrence: None)
  Receive Date: 20080428
  Receipt Date: 20070628
  Transmission Date: 20081010
  Serious: Yes (Other)
  Sender: FDA-Public Use
  Company Number: US-AMGEN-US231654

PATIENT
  Age: 65 Year
  Sex: Female

DRUGS (2)
  1. SENSIPAR [Suspect]
     Indication: HYPERPARATHYROIDISM SECONDARY
     Route: 065
  2. ZEMPLAR [Concomitant]
     Route: 065

REACTIONS (1)
  - BLOOD CALCIUM DECREASED [None]
